FAERS Safety Report 17688244 (Version 1)
Quarter: 2020Q2

REPORT INFORMATION
  Report Type: Spontaneous
  Country: US (occurrence: US)
  Receive Date: 20200420
  Receipt Date: 20200420
  Transmission Date: 20200714
  Serious: Yes (Life-Threatening, Disabling)
  Sender: FDA-Public Use
  Company Number: None

PATIENT
  Age: 36 Year
  Sex: Female
  Weight: 54.9 kg

DRUGS (3)
  1. RANITIDINE. [Suspect]
     Active Substance: RANITIDINE
     Indication: GASTROOESOPHAGEAL REFLUX DISEASE
     Dosage: ?          QUANTITY:1 TABLET(S);?
     Route: 048
     Dates: start: 20120501, end: 20191101
  2. OMEPRAZOLE 40MG [Concomitant]
     Active Substance: OMEPRAZOLE
  3. FAMOTIDINE 40MG [Concomitant]
     Active Substance: FAMOTIDINE

REACTIONS (1)
  - Colon cancer stage III [None]

NARRATIVE: CASE EVENT DATE: 20170921
